FAERS Safety Report 19904211 (Version 3)
Quarter: 2021Q4

REPORT INFORMATION
  Report Type: Report from Study
  Country: BR (occurrence: BR)
  Receive Date: 20210930
  Receipt Date: 20211213
  Transmission Date: 20220303
  Serious: Yes (Other)
  Sender: FDA-Public Use
  Company Number: BR-GLAXOSMITHKLINE-BR2021GSK201894

PATIENT
  Age: 43 Year
  Sex: Female

DRUGS (1)
  1. NIRAPARIB [Suspect]
     Active Substance: NIRAPARIB
     Indication: Ovarian cancer
     Dosage: UNK
     Route: 048
     Dates: start: 20210428, end: 20210714

REACTIONS (2)
  - Malignant neoplasm progression [Unknown]
  - Malignant peritoneal neoplasm [Unknown]

NARRATIVE: CASE EVENT DATE: 20210707
